FAERS Safety Report 9106090 (Version 1)
Quarter: 2013Q1

REPORT INFORMATION
  Report Type: Report from Study
  Country: FR (occurrence: FR)
  Receive Date: 20130221
  Receipt Date: 20130221
  Transmission Date: 20140127
  Serious: Yes (Hospitalization)
  Sender: FDA-Public Use
  Company Number: FR-BRISTOL-MYERS SQUIBB COMPANY-15708100

PATIENT
  Age: 70 Year
  Sex: Male

DRUGS (10)
  1. IPILIMUMAB [Suspect]
     Indication: PROSTATE CANCER
     Dosage: 250 MG TOTAL DOSE
     Route: 042
     Dates: start: 20110120, end: 20110324
  2. IKOREL [Concomitant]
     Route: 048
     Dates: start: 2007
  3. PRAVASTATIN SODIUM [Concomitant]
     Route: 048
     Dates: start: 2005
  4. DOLIPRANE [Concomitant]
     Route: 048
     Dates: start: 20110207
  5. FELDENE [Concomitant]
     Route: 048
     Dates: start: 201102
  6. IXPRIM [Concomitant]
     Route: 048
     Dates: start: 201102
  7. BISOPROLOL [Concomitant]
     Route: 048
     Dates: start: 2005
  8. GELUPRANE [Concomitant]
     Route: 048
     Dates: start: 20110118
  9. DECAPEPTYL [Concomitant]
     Route: 030
     Dates: start: 2002
  10. ZOLADEX [Concomitant]
     Route: 030
     Dates: start: 20101116

REACTIONS (2)
  - Diarrhoea [Recovered/Resolved]
  - Vomiting [Recovered/Resolved]
